FAERS Safety Report 12739146 (Version 1)
Quarter: 2016Q3

REPORT INFORMATION
  Report Type: Spontaneous
  Country: US (occurrence: US)
  Receive Date: 20160912
  Receipt Date: 20160912
  Transmission Date: 20161109
  Serious: No
  Sender: FDA-Public Use
  Company Number: US-TEVA-681955USA

PATIENT
  Sex: Female

DRUGS (3)
  1. QVAR [Suspect]
     Active Substance: BECLOMETHASONE DIPROPIONATE
     Dosage: 160 MICROGRAM DAILY; D
  2. QVAR [Suspect]
     Active Substance: BECLOMETHASONE DIPROPIONATE
     Dosage: 40 MICROGRAM DAILY;
  3. QVAR [Suspect]
     Active Substance: BECLOMETHASONE DIPROPIONATE
     Dosage: 80 MICROGRAM DAILY;

REACTIONS (3)
  - Fatigue [Unknown]
  - Dyspepsia [Unknown]
  - Nervousness [Unknown]
